FAERS Safety Report 14957299 (Version 1)
Quarter: 2018Q2

REPORT INFORMATION
  Report Type: Spontaneous
  Country: US (occurrence: US)
  Receive Date: 20180509
  Receipt Date: 20180509
  Transmission Date: 20180711
  Serious: No
  Sender: FDA-Public Use
  Company Number: None

PATIENT
  Age: 50 Year
  Sex: Male

DRUGS (1)
  1. GENVOYA [Suspect]
     Active Substance: COBICISTAT\ELVITEGRAVIR\EMTRICITABINE\TENOFOVIR ALAFENAMIDE FUMARATE
     Indication: HIV INFECTION
     Route: 048
     Dates: start: 20171026, end: 20180509

REACTIONS (6)
  - Fatigue [None]
  - Asthenia [None]
  - Rhinorrhoea [None]
  - Dizziness [None]
  - Pain [None]
  - Disturbance in attention [None]

NARRATIVE: CASE EVENT DATE: 20180101
